FAERS Safety Report 6751854-5 (Version None)
Quarter: 2010Q2

REPORT INFORMATION
  Report Type: 
  Country: None (occurrence: None)
  Receive Date: 20100526
  Receipt Date: 20100401
  Transmission Date: 20101027
  Serious: No
  Sender: FDA-Public Use
  Company Number: 306637

PATIENT
  Age: 62 Year
  Sex: Male

DRUGS (1)
  1. VICTOZA [Suspect]
     Indication: INSULIN-REQUIRING TYPE 2 DIABETES MELLITUS
     Dosage: 1.5 MG, QD, SUBCUTANEOUS
     Route: 058
     Dates: start: 20100327

REACTIONS (2)
  - HEADACHE [None]
  - INSOMNIA [None]
